FAERS Safety Report 13940229 (Version 2)
Quarter: 2017Q3

REPORT INFORMATION
  Report Type: Spontaneous
  Country: US (occurrence: US)
  Receive Date: 20170906
  Receipt Date: 20170911
  Transmission Date: 20171127
  Serious: Yes (Death, Hospitalization, Other)
  Sender: FDA-Public Use
  Company Number: US-INCYTE CORPORATION-2017IN007384

PATIENT

DRUGS (4)
  1. JAKAFI [Suspect]
     Active Substance: RUXOLITINIB
     Indication: MYELOFIBROSIS
     Dosage: 20 MG, BID
     Route: 048
     Dates: start: 20150311
  2. JAKAFI [Suspect]
     Active Substance: RUXOLITINIB
     Dosage: 10 MG, BID
     Route: 048
  3. JAKAFI [Suspect]
     Active Substance: RUXOLITINIB
     Dosage: 5 MG, BID
     Route: 048
  4. JAKAFI [Suspect]
     Active Substance: RUXOLITINIB
     Dosage: 10 MG, BID
     Route: 048

REACTIONS (18)
  - Joint injury [Unknown]
  - Death [Fatal]
  - Hypertension [Unknown]
  - Confusional state [Unknown]
  - Status epilepticus [Unknown]
  - Unresponsive to stimuli [Unknown]
  - Fall [Unknown]
  - Nephrolithiasis [Unknown]
  - Platelet count increased [Unknown]
  - Gait disturbance [Unknown]
  - Blood count abnormal [Unknown]
  - Blood creatinine increased [Unknown]
  - Hypotension [Unknown]
  - Energy increased [Unknown]
  - Pneumonia [Unknown]
  - Post procedural haemorrhage [Unknown]
  - Mycobacterium avium complex infection [Unknown]
  - Increased appetite [Unknown]

NARRATIVE: CASE EVENT DATE: 201503
